FAERS Safety Report 9799606 (Version 2)
Quarter: 2014Q1

REPORT INFORMATION
  Report Type: Spontaneous
  Country: US (occurrence: US)
  Receive Date: 20140106
  Receipt Date: 20140106
  Transmission Date: 20141002
  Serious: No
  Sender: FDA-Public Use
  Company Number: US-GILEAD-2010-0031342

PATIENT
  Age: 53 Year
  Sex: Female
  Weight: 99.34 kg

DRUGS (8)
  1. LETAIRIS [Suspect]
     Indication: PULMONARY ARTERIAL HYPERTENSION
     Route: 048
     Dates: start: 20100813
  2. ATENOLOL [Concomitant]
  3. PRINIVIL [Concomitant]
  4. HCTZ [Concomitant]
  5. FLONASE [Concomitant]
  6. ASPIRIN [Concomitant]
  7. PROGRAF [Concomitant]
  8. VAGIFEM [Concomitant]

REACTIONS (1)
  - Headache [Unknown]
